FAERS Safety Report 25210956 (Version 4)
Quarter: 2025Q3

REPORT INFORMATION
  Report Type: Spontaneous
  Country: US (occurrence: US)
  Receive Date: 20250417
  Receipt Date: 20250924
  Transmission Date: 20251021
  Serious: No
  Sender: BRISTOL-MYERS SQUIBB COMPANY
  Company Number: US-BRISTOL-MYERS SQUIBB COMPANY-2025-057212

PATIENT
  Age: 91 Year
  Sex: Male
  Weight: 86.18 kg

DRUGS (1)
  1. REVLIMID [Suspect]
     Active Substance: LENALIDOMIDE
     Indication: Diffuse large B-cell lymphoma
     Dates: start: 20250301

REACTIONS (5)
  - Red blood cell count abnormal [Not Recovered/Not Resolved]
  - Oral pain [Recovering/Resolving]
  - Off label use [Unknown]
  - Eczema [Recovering/Resolving]
  - Ear disorder [Recovering/Resolving]
